FAERS Safety Report 9570813 (Version 1)
Quarter: 2013Q4

REPORT INFORMATION
  Report Type: Other
  Country: CA (occurrence: IN)
  Receive Date: 20131001
  Receipt Date: 20131001
  Transmission Date: 20140711
  Serious: Yes (Hospitalization)
  Sender: FDA-Public Use
  Company Number: IN-LUPIN PHARMACEUTICALS INC.-2013-01649

PATIENT
  Age: 55 Year
  Sex: Female

DRUGS (2)
  1. TRAMADOL [Suspect]
     Indication: ACUTE ABDOMEN
     Route: 042
  2. CEFTRIAXONE [Concomitant]
     Indication: PRODUCT USED FOR UNKNOWN INDICATION
     Route: 042

REACTIONS (1)
  - Delirium [Recovered/Resolved]
